FAERS Safety Report 4387206-5 (Version None)
Quarter: 2004Q2

REPORT INFORMATION
  Report Type: 
  Country: None (occurrence: None)
  Receive Date: 20040630
  Receipt Date: 20040324
  Transmission Date: 20050107
  Serious: No
  Sender: FDA-Public Use
  Company Number: US-GLAXOSMITHKLINE-A0504278A

PATIENT
  Age: 48 Year
  Sex: Female
  Weight: 85 kg

DRUGS (5)
  1. ADVAIR HFA [Suspect]
     Indication: ASTHMA
     Route: 055
     Dates: start: 20040223, end: 20040305
  2. FLOVENT [Suspect]
     Indication: ASTHMA
  3. SEREVENT [Suspect]
     Indication: ASTHMA
     Route: 055
  4. PREDNISONE [Concomitant]
  5. AUGMENTIN [Concomitant]

REACTIONS (3)
  - ASTHMA [None]
  - COUGH [None]
  - HYPERSENSITIVITY [None]
